FAERS Safety Report 15930496 (Version 6)
Quarter: 2019Q3

REPORT INFORMATION
  Report Type: Report from Study
  Country: US (occurrence: US)
  Receive Date: 20190207
  Receipt Date: 20190723
  Transmission Date: 20191004
  Serious: Yes (Hospitalization)
  Sender: FDA-Public Use
  Company Number: US-ROCHE-2178710

PATIENT
  Age: 36 Year
  Sex: Female
  Weight: 71.28 kg

DRUGS (11)
  1. OCREVUS [Suspect]
     Active Substance: OCRELIZUMAB
     Indication: PRIMARY PROGRESSIVE MULTIPLE SCLEROSIS
     Route: 042
     Dates: start: 20180129
  2. OCREVUS [Suspect]
     Active Substance: OCRELIZUMAB
     Indication: PROGRESSIVE MULTIPLE SCLEROSIS
     Dosage: 2 DOSES 2 WEEKS APART EVERY 6 MONTHS
     Route: 042
     Dates: start: 20190220
  3. BACLOFEN. [Concomitant]
     Active Substance: BACLOFEN
     Indication: OFF LABEL USE
  4. BENADRYL [Concomitant]
     Active Substance: DIPHENHYDRAMINE HYDROCHLORIDE
     Indication: OFF LABEL USE
  5. B COMPLEX [VITAMIN B COMPLEX] [Concomitant]
     Indication: OFF LABEL USE
     Dosage: 1 ML LIQUID DROPPER PER DAY
     Route: 048
  6. BACLOFEN. [Concomitant]
     Active Substance: BACLOFEN
     Indication: MUSCLE SPASMS
     Dosage: AT NIGHT
     Route: 048
  7. MELATONIN [Concomitant]
     Active Substance: MELATONIN
     Indication: OFF LABEL USE
  8. OCREVUS [Suspect]
     Active Substance: OCRELIZUMAB
     Indication: MULTIPLE SCLEROSIS
     Route: 042
     Dates: start: 20180115
  9. OCREVUS [Suspect]
     Active Substance: OCRELIZUMAB
     Indication: RELAPSING MULTIPLE SCLEROSIS
     Route: 042
     Dates: start: 20180821
  10. OCREVUS [Suspect]
     Active Substance: OCRELIZUMAB
     Indication: OFF LABEL USE
  11. MELATONIN [Concomitant]
     Active Substance: MELATONIN
     Indication: INSOMNIA
     Dosage: AT NIGHT
     Route: 048
     Dates: start: 2017

REACTIONS (35)
  - Neuralgia [Recovered/Resolved]
  - Dysuria [Recovered/Resolved]
  - Abdominal pain lower [Recovered/Resolved]
  - Cystitis [Unknown]
  - Fatigue [Not Recovered/Not Resolved]
  - Pharyngeal swelling [Unknown]
  - Rash [Unknown]
  - Balance disorder [Not Recovered/Not Resolved]
  - Heart rate decreased [Recovered/Resolved]
  - Hypotension [Recovered/Resolved]
  - Swollen tongue [Not Recovered/Not Resolved]
  - Bladder pain [Unknown]
  - Eye irritation [Not Recovered/Not Resolved]
  - Asthenia [Not Recovered/Not Resolved]
  - Discomfort [Not Recovered/Not Resolved]
  - Intentional product use issue [Unknown]
  - Headache [Not Recovered/Not Resolved]
  - Burning sensation [Recovered/Resolved]
  - Gait disturbance [Not Recovered/Not Resolved]
  - Dysuria [Not Recovered/Not Resolved]
  - Abdominal pain upper [Unknown]
  - Hypertension [Recovered/Resolved]
  - Palpitations [Unknown]
  - Flushing [Recovered/Resolved]
  - Back pain [Not Recovered/Not Resolved]
  - Heart rate increased [Recovered/Resolved]
  - Urticaria [Unknown]
  - Pain [Unknown]
  - Throat irritation [Recovered/Resolved]
  - Adverse drug reaction [Not Recovered/Not Resolved]
  - Movement disorder [Not Recovered/Not Resolved]
  - Limb discomfort [Recovered/Resolved]
  - Dyspnoea [Unknown]
  - Thermal burn [Not Recovered/Not Resolved]
  - Off label use [Unknown]

NARRATIVE: CASE EVENT DATE: 20180730
